FAERS Safety Report 5504597-X (Version None)
Quarter: 2007Q4

REPORT INFORMATION
  Report Type: 
  Country: None (occurrence: None)
  Receive Date: 20071030
  Receipt Date: 20070720
  Transmission Date: 20080405
  Serious: No
  Sender: FDA-Public Use
  Company Number: 265832

PATIENT
  Age: 59 Year
  Sex: Female

DRUGS (2)
  1. LEVEMIR [Suspect]
     Indication: TYPE 1 DIABETES MELLITUS
     Dosage: QD;SUBCUTANEOUS
     Route: 058
  2. NOVOLOG FLEXPEN (INSULIN ASPART) SOLUTION FOR INJECTION [Concomitant]

REACTIONS (2)
  - INJECTION SITE PRURITUS [None]
  - INJECTION SITE SWELLING [None]
